FAERS Safety Report 13185074 (Version 1)
Quarter: 2017Q1

REPORT INFORMATION
  Report Type: Spontaneous
  Country: US (occurrence: US)
  Receive Date: 20170203
  Receipt Date: 20170203
  Transmission Date: 20170428
  Serious: Yes (Hospitalization)
  Sender: FDA-Public Use
  Company Number: US-JNJFOC-20170200565

PATIENT
  Sex: Male

DRUGS (3)
  1. PREDNISONE. [Concomitant]
     Active Substance: PREDNISONE
     Route: 065
  2. LEVAQUIN [Suspect]
     Active Substance: LEVOFLOXACIN
     Indication: UPPER RESPIRATORY TRACT INFECTION
     Dosage: TOOK FOR 9 DAYS
     Route: 048
     Dates: start: 201701, end: 20170130
  3. LEVAQUIN [Suspect]
     Active Substance: LEVOFLOXACIN
     Indication: SINUSITIS
     Dosage: TOOK FOR 9 DAYS
     Route: 048
     Dates: start: 201701, end: 20170130

REACTIONS (3)
  - Angina pectoris [Unknown]
  - Ischaemic stroke [Unknown]
  - Visual impairment [Unknown]

NARRATIVE: CASE EVENT DATE: 201701
